FAERS Safety Report 10851874 (Version 1)
Quarter: 2015Q1

REPORT INFORMATION
  Report Type: Spontaneous
  Country: US (occurrence: US)
  Receive Date: 20150222
  Receipt Date: 20150222
  Transmission Date: 20150721
  Serious: No
  Sender: FDA-Public Use
  Company Number: US-ALLERGAN-1406453US

PATIENT
  Sex: Female

DRUGS (2)
  1. BOTOX COSMETIC [Suspect]
     Active Substance: ONABOTULINUMTOXINA
     Indication: SKIN WRINKLING
     Dosage: 25 UNITS, SINGLE
     Route: 030
     Dates: start: 20140324, end: 20140324
  2. ALBUTEROL. [Concomitant]
     Active Substance: ALBUTEROL
     Indication: ASTHMA
     Dosage: UNK

REACTIONS (6)
  - Muscle spasms [Recovered/Resolved]
  - Off label use [Unknown]
  - Musculoskeletal stiffness [Recovered/Resolved]
  - Lymphadenopathy [Recovered/Resolved]
  - Wrong technique in drug usage process [Unknown]
  - Dysphagia [Recovered/Resolved]
